FAERS Safety Report 6129456-3 (Version None)
Quarter: 2009Q1

REPORT INFORMATION
  Report Type: 
  Country: None (occurrence: None)
  Receive Date: 20090323
  Receipt Date: 20090323
  Transmission Date: 20090719
  Serious: Yes (Life-Threatening, Other)
  Sender: FDA-Public Use
  Company Number: None

PATIENT
  Age: 38 Year
  Sex: Female
  Weight: 73.9363 kg

DRUGS (2)
  1. CYMBALTA [Suspect]
     Indication: ANXIETY DISORDER
     Dosage: 60 MG ONCE A DAY
     Dates: start: 20070721, end: 20090304
  2. CYMBALTA [Suspect]
     Indication: DEPRESSION
     Dosage: 60 MG ONCE A DAY
     Dates: start: 20070721, end: 20090304

REACTIONS (8)
  - DYSPNOEA [None]
  - FALL [None]
  - HYPERACUSIS [None]
  - MIGRAINE [None]
  - PAIN [None]
  - PHOTOPHOBIA [None]
  - THINKING ABNORMAL [None]
  - WITHDRAWAL SYNDROME [None]
